FAERS Safety Report 21471020 (Version 1)
Quarter: 2022Q4

REPORT INFORMATION
  Report Type: Spontaneous
  Country: CA (occurrence: CA)
  Receive Date: 20221018
  Receipt Date: 20221018
  Transmission Date: 20230112
  Serious: Yes (Other)
  Sender: FDA-Public Use
  Company Number: None

PATIENT
  Sex: Female

DRUGS (10)
  1. HYDROXYCHLOROQUINE [Suspect]
     Active Substance: HYDROXYCHLOROQUINE
     Indication: Product used for unknown indication
  2. CLARITHROMYCIN [Suspect]
     Active Substance: CLARITHROMYCIN
     Indication: Product used for unknown indication
  3. ABATACEPT [Concomitant]
     Active Substance: ABATACEPT
  4. BIAXIN [Concomitant]
     Active Substance: CLARITHROMYCIN
  5. ENBREL [Concomitant]
     Active Substance: ETANERCEPT
  6. LEFLUNOMIDE [Concomitant]
     Active Substance: LEFLUNOMIDE
  7. METHOTREXATE [Concomitant]
     Active Substance: METHOTREXATE
  8. NYSTATIN [Concomitant]
     Active Substance: NYSTATIN
  9. SIMPONI [Concomitant]
     Active Substance: GOLIMUMAB
     Dosage: SOLUTION SUBCUTANEOUS
  10. TOFACITINIB [Concomitant]
     Active Substance: TOFACITINIB

REACTIONS (2)
  - Drug intolerance [Unknown]
  - Hepatitis [Not Recovered/Not Resolved]
